FAERS Safety Report 8519168-0 (Version None)
Quarter: 2012Q3

REPORT INFORMATION
  Report Type: 
  Country: None (occurrence: None)
  Receive Date: 20120709
  Receipt Date: 20120622
  Transmission Date: 20120928
  Serious: Yes (Hospitalization)
  Sender: FDA-Public Use
  Company Number: 2012SGN00288

PATIENT
  Age: 30 Year
  Sex: Female

DRUGS (17)
  1. PANTOPRAZOLE [Concomitant]
  2. PROCHLORPERAZINE (PROCHLORPERAZINE MALEATE) [Concomitant]
  3. BRENTUXIMAB VEDOTIN (BRENTUXIMAB VEDOTIN) INJECTION [Suspect]
     Indication: NON-HODGKIN'S LYMPHOMA RECURRENT
     Dates: start: 20120418, end: 20120614
  4. APREPITANT [Concomitant]
  5. PEGFILGRASTIM (PEGFILGRASTIM) [Concomitant]
  6. SENNA-MINT WAF [Concomitant]
  7. DEXAMETHASONE SODIUM PHOSPHATE [Concomitant]
  8. CARBOPLATIN [Suspect]
     Indication: NON-HODGKIN'S LYMPHOMA RECURRENT
     Dates: end: 20120614
  9. ETOPOSIDE [Suspect]
     Indication: NON-HODGKIN'S LYMPHOMA RECURRENT
     Dates: end: 20120614
  10. ENOXAPRIN SODIUM (ENOXAPARIN SODIUM) [Concomitant]
  11. ONDANSETRON [Concomitant]
  12. AMBIEN [Concomitant]
  13. LORAZEPAM [Concomitant]
  14. IFOSFAMIDE [Suspect]
     Indication: NON-HODGKIN'S LYMPHOMA RECURRENT
     Dates: end: 20120614
  15. DOCUSATE SODIUM (DOCUSATE SODIUM) [Concomitant]
  16. LEUPROLIDE ACETATE [Concomitant]
  17. OMEPRAZOLE [Concomitant]

REACTIONS (3)
  - FEBRILE NEUTROPENIA [None]
  - NAUSEA [None]
  - DIARRHOEA [None]
